FAERS Safety Report 9393350 (Version 4)
Quarter: 2013Q4

REPORT INFORMATION
  Report Type: Spontaneous
  Country: JP (occurrence: JP)
  Receive Date: 20130710
  Receipt Date: 20131101
  Transmission Date: 20140711
  Serious: Yes (Other)
  Sender: FDA-Public Use
  Company Number: JP-CELGENEUS-087-21660-13070974

PATIENT
  Age: 69 Year
  Sex: Female
  Weight: 69 kg

DRUGS (8)
  1. ABRAXANE [Suspect]
     Indication: BREAST CANCER
     Route: 041
     Dates: start: 20120802, end: 20120802
  2. ABRAXANE [Suspect]
     Dosage: 200 MILLIGRAM
     Route: 041
     Dates: start: 20120809, end: 20120816
  3. GRANISETRON [Concomitant]
     Indication: VOMITING
     Dosage: 3 MILLIGRAM
     Route: 041
     Dates: start: 20120802, end: 20120816
  4. GRANISETRON [Concomitant]
     Indication: PROPHYLAXIS
  5. CLARITIN [Concomitant]
     Indication: URTICARIA
     Route: 065
     Dates: start: 20120806
  6. ALLEGRA [Concomitant]
     Indication: URTICARIA
     Route: 065
     Dates: start: 20120809
  7. DECADRON [Concomitant]
     Indication: URTICARIA
     Route: 065
     Dates: start: 20120809
  8. DECADRON [Concomitant]
     Indication: CYSTITIS HAEMORRHAGIC
     Dosage: 7.5 MILLIGRAM
     Route: 048
     Dates: start: 20120824

REACTIONS (2)
  - Cystitis haemorrhagic [Recovered/Resolved]
  - Urticaria [Recovered/Resolved]
